FAERS Safety Report 7686674-0 (Version None)
Quarter: 2011Q3

REPORT INFORMATION
  Report Type: 
  Country: None (occurrence: None)
  Receive Date: 20110816
  Receipt Date: 20110805
  Transmission Date: 20111222
  Serious: Yes (Other)
  Sender: FDA-Public Use
  Company Number: US-BAYER-200924399NA

PATIENT
  Age: 70 Year
  Sex: Male
  Weight: 75 kg

DRUGS (53)
  1. TRASYLOL [Suspect]
     Dosage: 50 ML/HR
     Route: 042
     Dates: start: 20041231, end: 20041231
  2. VERSED [Concomitant]
  3. RED BLOOD CELLS [Concomitant]
     Dosage: 2 U, UNK
     Dates: start: 20041231
  4. MULTI-VITAMIN [Concomitant]
     Dosage: 1 DAILY IN AM, UNK
     Route: 048
  5. AMARYL [Concomitant]
     Dosage: 4 MG, QD
     Route: 048
     Dates: start: 20050101
  6. TOPROL-XL [Concomitant]
     Dosage: 50 MG, QD
     Route: 048
     Dates: start: 20050101
  7. INSULIN [Concomitant]
     Dosage: UNK
     Route: 042
     Dates: start: 20041230
  8. LOPRESOR SLOW RELEASE [Concomitant]
     Dosage: 50 MG, UNK
     Route: 048
     Dates: start: 20041230
  9. ANCEF [Concomitant]
     Dosage: 2 GM, UNK
     Route: 042
     Dates: start: 20041231
  10. FAMOTIDINE [Concomitant]
     Dosage: 6 ML, UNK
     Route: 042
     Dates: start: 20041231
  11. FENOLDOPAM [Concomitant]
     Dosage: 10 MG, UNK
     Dates: start: 20041231
  12. PAVULON [Concomitant]
  13. PLAVIX [Concomitant]
     Dosage: 75 MG, QD
     Route: 048
     Dates: start: 20030101, end: 20050101
  14. ASPIRIN [Concomitant]
     Dosage: 81 MG, QD
     Route: 048
  15. METOPROLOL TARTRATE [Concomitant]
     Dosage: 25 MG, QD
     Route: 048
     Dates: end: 20050101
  16. DIPHENHYDRAMINE HCL [Concomitant]
     Dosage: 50 MG, UNK
     Dates: start: 20041231
  17. LEVOTHYROXINE SODIUM [Concomitant]
     Dosage: 200 MCG QD
     Route: 048
     Dates: start: 19940101, end: 20050101
  18. DARVOCET-N 50 [Concomitant]
     Dosage: 100-650 MG EVERY 8 HOURS AS NEEDED
     Route: 048
  19. GLYCOPYRROLATE [Concomitant]
     Dosage: 1 ML, UNK
     Route: 042
     Dates: start: 20041231
  20. TRASYLOL [Suspect]
     Dosage: UNK
  21. LISINOPRIL [Concomitant]
     Dosage: 10 MG, QD
     Route: 048
     Dates: start: 20050101
  22. LOVAZA [Concomitant]
     Dosage: 1000 MG, QD
     Route: 048
  23. PROSTIGMIN BROMIDE [Concomitant]
     Dosage: 10 ML, UNK
     Route: 042
     Dates: start: 20041231
  24. FUROSEMIDE [Concomitant]
     Dosage: 160 MG, UNK
     Route: 042
     Dates: start: 20041231
  25. MANNITOL [Concomitant]
     Dosage: 100 ML, UNK
     Route: 042
     Dates: start: 20041231
  26. TRASYLOL [Suspect]
     Indication: CORONARY ARTERY BYPASS
     Dosage: 200 ML, UNK
     Route: 042
     Dates: start: 20041231, end: 20041231
  27. LEVOTHYROXINE SODIUM [Concomitant]
     Dosage: 175 MCG QD
     Dates: start: 20050101
  28. NAPROXEN [Concomitant]
     Dosage: 500 MG, BID
     Route: 048
     Dates: start: 20050101, end: 20050101
  29. SODIUM BICARBONATE [Concomitant]
     Dosage: UNK
     Route: 042
     Dates: start: 20041231
  30. TEMAZEPAM [Concomitant]
     Dosage: 30 MG, UNK
     Route: 048
     Dates: start: 20041231
  31. PROTAMINE SULFATE [Concomitant]
     Dosage: 50 MG X 6, UNK
     Dates: start: 20041231
  32. GLIMEPIRIDE [Concomitant]
     Dosage: 16 MG, UNK
     Route: 048
     Dates: start: 20041231
  33. NOREPINEPHRINE BITARTRATE [Concomitant]
  34. TRICOR [Concomitant]
     Dosage: 145 MG, QD
     Route: 048
     Dates: start: 20050101
  35. DOCOSAHEXANOIC ACID [Concomitant]
     Dosage: 120 MG, BID
     Route: 048
     Dates: start: 20050101
  36. EPA [Concomitant]
     Dosage: 180 MG, BID
     Route: 048
     Dates: start: 20050101
  37. LIDOCAINE [Concomitant]
     Dosage: UNK
     Route: 042
     Dates: start: 20041230
  38. POTASSIUM CHLORIDE [Concomitant]
     Dosage: 80 MEQ, UNK
     Route: 042
     Dates: start: 20041231
  39. PANCURONIUM [Concomitant]
     Dosage: 20 ML, UNK
     Route: 042
     Dates: start: 20041231
  40. HEPARIN [Concomitant]
  41. FENTANYL [Concomitant]
     Dosage: UNK
     Route: 042
     Dates: start: 20041230
  42. LIPITOR [Concomitant]
     Dosage: 40 MG, UNK
     Route: 048
     Dates: start: 20010101, end: 20050101
  43. PROPOFOL [Concomitant]
     Dosage: 10 MG/ML, UNK
     Route: 042
     Dates: start: 20041231
  44. METOPROLOL TARTRATE [Concomitant]
     Dosage: 50 MG, UNK
     Route: 048
     Dates: start: 20041231
  45. METOCLOPRAMIDE [Concomitant]
     Dosage: 2 ML, UNK
     Route: 042
     Dates: start: 20041231
  46. LEVARTERENOL [Concomitant]
     Dosage: 4 ML, UNK
     Route: 042
     Dates: start: 20041231
  47. PAXIL [Concomitant]
     Dosage: 40 MG, QD
     Route: 048
     Dates: start: 20010101, end: 20050101
  48. TRAMADOL HCL [Concomitant]
     Dosage: 50 MG, BID
     Route: 048
  49. MIDAZOLAM HCL [Concomitant]
     Dosage: 1 MG/ML, UNK
     Route: 042
     Dates: start: 20041230
  50. CHLORHEXIDINE GLUCONATE [Concomitant]
     Dosage: UNK
     Route: 042
     Dates: start: 20041230
  51. CEFAZOLIN [Concomitant]
     Dosage: 1 GM, UNK
     Route: 042
     Dates: start: 20041231
  52. PAPAVERINE [Concomitant]
     Dosage: 30 MG, UNK
     Route: 042
     Dates: start: 20041231
  53. MORPHINE SULFATE [Concomitant]
     Dosage: 10 MG, UNK
     Route: 042
     Dates: start: 20041231

REACTIONS (11)
  - RENAL FAILURE [None]
  - RENAL IMPAIRMENT [None]
  - RENAL INJURY [None]
  - ANXIETY [None]
  - FEAR [None]
  - ANHEDONIA [None]
  - INJURY [None]
  - EMOTIONAL DISTRESS [None]
  - STRESS [None]
  - UNEVALUABLE EVENT [None]
  - PAIN [None]
